FAERS Safety Report 20107973 (Version 1)
Quarter: 2021Q4

REPORT INFORMATION
  Report Type: Spontaneous
  Country: US (occurrence: US)
  Receive Date: 20211124
  Receipt Date: 20211124
  Transmission Date: 20220303
  Serious: No
  Sender: FDA-Public Use
  Company Number: US-PFIZER INC-2021475409

PATIENT
  Age: 71 Year
  Sex: Female

DRUGS (3)
  1. EUCRISA [Suspect]
     Active Substance: CRISABOROLE
     Indication: Dry skin
     Dosage: UNK, 2X/DAY (APPLY TO AA BID FOR DAILY MAINTENANCE)
     Route: 061
  2. EUCRISA [Suspect]
     Active Substance: CRISABOROLE
     Indication: Dermatitis allergic
  3. EUCRISA [Suspect]
     Active Substance: CRISABOROLE
     Indication: Dermatitis allergic

REACTIONS (2)
  - Off label use [Unknown]
  - Drug ineffective for unapproved indication [Unknown]
